FAERS Safety Report 16619170 (Version 1)
Quarter: 2019Q3

REPORT INFORMATION
  Report Type: Report from Study
  Country: CN (occurrence: CN)
  Receive Date: 20190723
  Receipt Date: 20190723
  Transmission Date: 20191004
  Serious: Yes (Other)
  Sender: FDA-Public Use
  Company Number: CN-JNJFOC-20190718680

PATIENT

DRUGS (1)
  1. RISPERIDONE. [Suspect]
     Active Substance: RISPERIDONE
     Indication: SCHIZOPHRENIA
     Route: 065

REACTIONS (53)
  - Memory impairment [Unknown]
  - Abnormal dreams [Unknown]
  - Hyperhidrosis [Unknown]
  - Pigmentation disorder [Unknown]
  - Polyuria [Unknown]
  - Asthenia [Unknown]
  - Anxiety [Unknown]
  - Tremor [Unknown]
  - Tachycardia [Unknown]
  - Galactorrhoea [Unknown]
  - Libido increased [Unknown]
  - Dependence [Unknown]
  - Drug dependence [Unknown]
  - Hypersomnia [Unknown]
  - Apathy [Unknown]
  - Paraesthesia [Unknown]
  - Polydipsia [Unknown]
  - Epilepsy [Unknown]
  - Sedation [Unknown]
  - Pruritus [Unknown]
  - Weight decreased [Unknown]
  - Gynaecomastia [Unknown]
  - Orgasm abnormal [Unknown]
  - Skin depigmentation [Unknown]
  - Disturbance in attention [Unknown]
  - Depression [Unknown]
  - Muscle rigidity [Unknown]
  - Hyperkinesia [Unknown]
  - Ejaculation disorder [Unknown]
  - Accommodation disorder [Unknown]
  - Hypokinesia [Unknown]
  - Akathisia [Unknown]
  - Vomiting [Unknown]
  - Dizziness postural [Unknown]
  - Fatigue [Unknown]
  - Akinesia [Unknown]
  - Micturition disorder [Unknown]
  - Photosensitivity reaction [Unknown]
  - Diarrhoea [Unknown]
  - Constipation [Unknown]
  - Weight increased [Unknown]
  - Erectile dysfunction [Unknown]
  - Vulvovaginal dryness [Unknown]
  - Dystonia [Unknown]
  - Salivary hypersecretion [Unknown]
  - Headache [Unknown]
  - Aptyalism [Unknown]
  - Insomnia [Unknown]
  - Palpitations [Unknown]
  - Amenorrhoea [Unknown]
  - Libido decreased [Unknown]
  - Nausea [Unknown]
  - Rash [Unknown]
